FAERS Safety Report 20746708 (Version 1)
Quarter: 2022Q2

REPORT INFORMATION
  Report Type: Spontaneous
  Country: US (occurrence: US)
  Receive Date: 20220425
  Receipt Date: 20220425
  Transmission Date: 20220720
  Serious: No
  Sender: FDA-Public Use
  Company Number: US-ABBVIE-22K-163-4263530-00

PATIENT
  Sex: Female

DRUGS (2)
  1. SKYRIZI [Suspect]
     Active Substance: RISANKIZUMAB-RZAA
     Indication: Psoriatic arthropathy
     Route: 058
  2. OTEZLA [Concomitant]
     Active Substance: APREMILAST
     Indication: Psoriatic arthropathy

REACTIONS (1)
  - Drug ineffective [Unknown]
